FAERS Safety Report 22045918 (Version 1)
Quarter: 2023Q1

REPORT INFORMATION
  Report Type: Spontaneous
  Country: GB (occurrence: GB)
  Receive Date: 20230228
  Receipt Date: 20230228
  Transmission Date: 20230417
  Serious: Yes (Other)
  Sender: FDA-Public Use
  Company Number: GB-MHRA-MED-202302201228119450-NSZCM

PATIENT
  Age: 46 Year

DRUGS (1)
  1. DOCETAXEL [Suspect]
     Active Substance: DOCETAXEL
     Dosage: UNK

REACTIONS (4)
  - Blood pressure increased [Unknown]
  - Chest pain [Recovered/Resolved]
  - Erythema [Recovered/Resolved]
  - Back pain [Unknown]
